FAERS Safety Report 7125046-4 (Version None)
Quarter: 2010Q4

REPORT INFORMATION
  Report Type: 
  Country: None (occurrence: None)
  Receive Date: 20101129
  Receipt Date: 20101115
  Transmission Date: 20110411
  Serious: Yes (Other)
  Sender: FDA-Public Use
  Company Number: US-JNJFOC-20101105244

PATIENT
  Sex: Female

DRUGS (5)
  1. TOPAMAX [Suspect]
     Indication: MIGRAINE PROPHYLAXIS
     Route: 048
  2. ZOMIG [Concomitant]
     Indication: MIGRAINE
     Route: 048
  3. DICLOFENAC SODIUM [Concomitant]
     Indication: MIGRAINE
     Route: 048
  4. CREON [Concomitant]
     Indication: DYSPEPSIA
     Dosage: 240000 UNITS WITH MEALS
     Route: 048
  5. LOESTRIN 1.5/30 [Concomitant]
     Indication: MENORRHAGIA
     Route: 048

REACTIONS (3)
  - ABNORMAL LOSS OF WEIGHT [None]
  - BLOOD AMYLASE INCREASED [None]
  - NEPHROLITHIASIS [None]
